FAERS Safety Report 15317339 (Version 1)
Quarter: 2018Q3

REPORT INFORMATION
  Report Type: Spontaneous
  Country: US (occurrence: US)
  Receive Date: 20180824
  Receipt Date: 20180824
  Transmission Date: 20181010
  Serious: No
  Sender: FDA-Public Use
  Company Number: US-BAYER-2018-159360

PATIENT
  Age: 22 Year
  Sex: Male

DRUGS (1)
  1. ULTRAVIST [Suspect]
     Active Substance: IOPROMIDE
     Indication: CROHN^S DISEASE
     Dosage: UNK UNK, ONCE
     Route: 042
     Dates: start: 20180321, end: 20180321

REACTIONS (2)
  - Vomiting [None]
  - Urticaria [None]

NARRATIVE: CASE EVENT DATE: 20180321
